FAERS Safety Report 5389078-9 (Version None)
Quarter: 2007Q3

REPORT INFORMATION
  Report Type: 
  Country: None (occurrence: None)
  Receive Date: 20070713
  Receipt Date: 20070706
  Transmission Date: 20080115
  Serious: Yes (Other)
  Sender: FDA-Public Use
  Company Number: 163-21880-07030809

PATIENT
  Age: 56 Year
  Sex: Male

DRUGS (7)
  1. REVLIMID [Suspect]
     Indication: MULTIPLE MYELOMA
     Dosage: 25 MG, QD X 21 DAYS THEN 7 OFF, ORAL
     Route: 048
     Dates: start: 20070216
  2. MAG OXIDE (MAGNESIUM OXIDE) [Concomitant]
  3. NEURONTIN [Concomitant]
  4. NORVASC [Concomitant]
  5. PERCOCET [Concomitant]
  6. TUMS (CALCIUM CARBONATE) [Concomitant]
  7. TUSSIONEX (TUSSIONEX ^PENNWALT^) [Concomitant]

REACTIONS (12)
  - ANGIOEDEMA [None]
  - BLOOD IMMUNOGLOBULIN A ABNORMAL [None]
  - BLOOD IMMUNOGLOBULIN G ABNORMAL [None]
  - BLOOD IMMUNOGLOBULIN M ABNORMAL [None]
  - EOSINOPHIL COUNT ABNORMAL [None]
  - INFECTION [None]
  - NASOPHARYNGITIS [None]
  - NEUTROPHIL COUNT ABNORMAL [None]
  - PLATELET COUNT DECREASED [None]
  - RASH [None]
  - STOMACH DISCOMFORT [None]
  - STOMATITIS [None]
